FAERS Safety Report 8334753-7 (Version None)
Quarter: 2012Q2

REPORT INFORMATION
  Report Type: 
  Country: None (occurrence: None)
  Receive Date: 20120503
  Receipt Date: 20120427
  Transmission Date: 20120825
  Serious: No
  Sender: FDA-Public Use
  Company Number: US-UCBSA-054803

PATIENT
  Age: 18 Year
  Sex: Male

DRUGS (1)
  1. CIMZIA [Suspect]
     Indication: CROHN'S DISEASE
     Dosage: INITIAL DOSE 400MG WEEK 0,2, AND 4 AND MAINTANANCE DOSE 400MG EVERY 4 WEEKS
     Route: 058
     Dates: start: 20120302

REACTIONS (4)
  - MALAISE [None]
  - VOMITING [None]
  - PAIN [None]
  - PALLOR [None]
